FAERS Safety Report 13333486 (Version 1)
Quarter: 2017Q1

REPORT INFORMATION
  Report Type: Spontaneous
  Country: US (occurrence: US)
  Receive Date: 20170314
  Receipt Date: 20170314
  Transmission Date: 20170428
  Serious: No
  Sender: FDA-Public Use
  Company Number: US-TEVA-718987ACC

PATIENT
  Age: 79 Year
  Sex: Female
  Weight: 56 kg

DRUGS (1)
  1. RISEDTAB-A [Suspect]
     Active Substance: RISEDRONIC ACID
     Dates: start: 20161205

REACTIONS (1)
  - Blood glucose decreased [Unknown]

NARRATIVE: CASE EVENT DATE: 20161205
